FAERS Safety Report 22633750 (Version 2)
Quarter: 2023Q2

REPORT INFORMATION
  Report Type: Spontaneous
  Country: JP (occurrence: JP)
  Receive Date: 20230623
  Receipt Date: 20230627
  Transmission Date: 20230721
  Serious: Yes (Hospitalization, Other)
  Sender: FDA-Public Use
  Company Number: JP-PFIZER INC-PV202300108840

PATIENT
  Age: 84 Year
  Sex: Female
  Weight: 37.4 kg

DRUGS (5)
  1. TRIAZOLAM [Suspect]
     Active Substance: TRIAZOLAM
     Indication: Insomnia
     Dosage: 0.25 MG, 1X/DAY (BEFORE BEDTIME)
  2. AMLODIPINE [Concomitant]
     Active Substance: AMLODIPINE BESYLATE
     Dosage: 5 MG, 1X/DAY (AFTER BREAKFAST)
  3. AZILSARTAN KAMEDOXOMIL [Concomitant]
     Active Substance: AZILSARTAN KAMEDOXOMIL
     Dosage: 20 MG, 1X/DAY (AFTER BREAKFAST)
  4. METFORMIN [Concomitant]
     Active Substance: METFORMIN HYDROCHLORIDE
     Dosage: 250 MG, 2X/DAY (AFTER BREAKFAST AND DINNER)
  5. SITAGLIPTIN [Concomitant]
     Active Substance: SITAGLIPTIN
     Dosage: 50 MG, 1X/DAY (AFTER BREAKFAST)

REACTIONS (2)
  - Decubitus ulcer [Unknown]
  - Somnolence [Unknown]
